FAERS Safety Report 4679597-2 (Version None)
Quarter: 2005Q2

REPORT INFORMATION
  Report Type: 
  Country: None (occurrence: None)
  Receive Date: 20050602
  Receipt Date: 20050518
  Transmission Date: 20051028
  Serious: No
  Sender: FDA-Public Use
  Company Number: CA-BOEHRINGER INGELHEIM PHARMACEUTICALS, INC.-2005-CN-00683CN

PATIENT
  Age: 70 Year
  Sex: Male

DRUGS (2)
  1. MICARDIS [Suspect]
     Route: 048
  2. SLEEPING PILLS [Concomitant]

REACTIONS (9)
  - ANEURYSM [None]
  - BLOOD CREATINE PHOSPHOKINASE INCREASED [None]
  - CARDIAC VALVE DISEASE [None]
  - CHEST PAIN [None]
  - ELECTROCARDIOGRAM ST SEGMENT ELEVATION [None]
  - MITRAL VALVE INCOMPETENCE [None]
  - MYOCARDIAL INFARCTION [None]
  - TACHYCARDIA [None]
  - VENTRICULAR ARRHYTHMIA [None]
